FAERS Safety Report 22308918 (Version 1)
Quarter: 2023Q2

REPORT INFORMATION
  Report Type: Report from Study
  Country: EG (occurrence: EG)
  Receive Date: 20230511
  Receipt Date: 20230511
  Transmission Date: 20230721
  Serious: Yes (Other)
  Sender: FDA-Public Use
  Company Number: EG-002147023-NVSC2023EG104809

PATIENT
  Age: 40 Year
  Sex: Female

DRUGS (7)
  1. NEORAL [Suspect]
     Active Substance: CYCLOSPORINE
     Indication: Prophylaxis against transplant rejection
     Dosage: 250 MG (IN THE FIRST 2 YEARS 150MG IN THE MORNING AND 100MG ON THE EVENING)
     Route: 065
     Dates: start: 20151225
  2. NEORAL [Suspect]
     Active Substance: CYCLOSPORINE
     Dosage: 175 MG (THEN 100MG ON THE MORNING AND 75 IN THE EVENING)
     Route: 065
  3. NEORAL [Suspect]
     Active Substance: CYCLOSPORINE
     Dosage: 125 MG (75 MG IN THE MORNING AND 50 MG IN THE EVENING)
     Route: 065
     Dates: end: 20230503
  4. SOLUPRED [Concomitant]
     Indication: Steroid therapy
     Dosage: 5 MG, QD (1 TABLET DAILY)
     Route: 065
     Dates: start: 20151225
  5. SOLUPRED [Concomitant]
     Dosage: 20 G, QD (1 TABLET DAILY)
     Route: 065
     Dates: start: 20230303
  6. SOLUPRED [Concomitant]
     Dosage: 10 G, QD (1 TABLET DAILY)
     Route: 065
     Dates: start: 20230503
  7. MYFORTIC [Concomitant]
     Active Substance: MYCOPHENOLATE SODIUM
     Indication: Prophylaxis against transplant rejection
     Dosage: 1080 MG (ONE TABLET 720 MG IN THE MORNING - ONE TABLET 360 MG IN THE EVENING)
     Route: 065
     Dates: start: 20151225

REACTIONS (10)
  - Blood sodium abnormal [Not Recovered/Not Resolved]
  - Blood potassium abnormal [Not Recovered/Not Resolved]
  - Peripheral swelling [Not Recovered/Not Resolved]
  - Swelling face [Not Recovered/Not Resolved]
  - Decreased immune responsiveness [Not Recovered/Not Resolved]
  - Haemoglobin abnormal [Not Recovered/Not Resolved]
  - Immunosuppressant drug level abnormal [Not Recovered/Not Resolved]
  - Blood creatinine increased [Not Recovered/Not Resolved]
  - Renal impairment [Not Recovered/Not Resolved]
  - Intentional product misuse [Not Recovered/Not Resolved]

NARRATIVE: CASE EVENT DATE: 20230101
